FAERS Safety Report 20830239 (Version 1)
Quarter: 2022Q2

REPORT INFORMATION
  Report Type: Spontaneous
  Country: US (occurrence: US)
  Receive Date: 20220514
  Receipt Date: 20220514
  Transmission Date: 20220720
  Serious: No
  Sender: FDA-Public Use
  Company Number: US-UNITED THERAPEUTICS-UNT-2022-010491

PATIENT
  Sex: Male

DRUGS (2)
  1. TYVASO [Suspect]
     Active Substance: TREPROSTINIL
     Indication: Pulmonary arterial hypertension
     Dosage: UNK
  2. TYVASO [Suspect]
     Active Substance: TREPROSTINIL
     Dosage: 64 ?G, QID (4 DAILY DOSES OF 8 BREATHS PER SESSION ON ONLY TWO DAYS OUT OF EACH WEEK)

REACTIONS (2)
  - Headache [Unknown]
  - Inappropriate schedule of product administration [Unknown]
